FAERS Safety Report 10239306 (Version 1)
Quarter: 2014Q2

REPORT INFORMATION
  Report Type: Report from Study
  Country: FR (occurrence: FR)
  Receive Date: 20140616
  Receipt Date: 20140616
  Transmission Date: 20141212
  Serious: Yes (Hospitalization)
  Sender: FDA-Public Use
  Company Number: FR-BRISTOL-MYERS SQUIBB COMPANY-20956868

PATIENT
  Age: 56 Year
  Sex: Male
  Weight: 88 kg

DRUGS (6)
  1. SPRYCEL [Suspect]
     Indication: CHRONIC MYELOID LEUKAEMIA
  2. EZETROL [Concomitant]
     Indication: HYPERLIPIDAEMIA
     Route: 048
  3. KARDEGIC [Concomitant]
     Indication: MYOCARDIAL INFARCTION
     Route: 048
  4. LOGIMAX [Concomitant]
     Indication: HYPERTENSION
     Route: 048
  5. SPIRONOLACTONE [Concomitant]
     Indication: HYPERTENSION
     Route: 048
  6. LANZOR [Concomitant]
     Route: 048

REACTIONS (1)
  - Arthropathy [Recovered/Resolved]
